FAERS Safety Report 9466378 (Version 1)
Quarter: 2013Q3

REPORT INFORMATION
  Report Type: Spontaneous
  Country: CN (occurrence: CN)
  Receive Date: 20130820
  Receipt Date: 20130820
  Transmission Date: 20140515
  Serious: Yes (Other)
  Sender: FDA-Public Use
  Company Number: CN-ASTRAZENECA-2013SE62253

PATIENT
  Age: 79 Year
  Sex: Female
  Weight: 52 kg

DRUGS (5)
  1. ROPIVACAINE [Suspect]
     Indication: EPIDURAL ANAESTHESIA
     Route: 008
  2. PETHIDINE [Concomitant]
     Dosage: 50 MG
  3. DROPERIDOL [Concomitant]
     Dosage: 2.5 MG
  4. RINGER SOLUTION [Concomitant]
  5. HYDROXYETHYL STARCH [Concomitant]
     Dosage: 2:1 OF CRYSTALLOID AND COLLOID
     Route: 042

REACTIONS (1)
  - Methaemoglobinaemia [Recovered/Resolved]
